FAERS Safety Report 6994645-2 (Version None)
Quarter: 2010Q3

REPORT INFORMATION
  Report Type: 
  Country: None (occurrence: None)
  Receive Date: 20100915
  Receipt Date: 20100915
  Transmission Date: 20110219
  Serious: Yes (Other)
  Sender: FDA-Public Use
  Company Number: None

PATIENT
  Age: 33 Year
  Sex: Female
  Weight: 75.7507 kg

DRUGS (2)
  1. NITROFURANTOIN [Suspect]
     Indication: URINARY TRACT INFECTION
     Dosage: 1CAPSULE 2X DAILY FOR 7 DAYS PO
     Route: 048
     Dates: start: 20091112, end: 20091120
  2. NITROFURANTOIN MONOHYDRATE/MACROCRYSTALS [Suspect]
     Indication: URINARY TRACT INFECTION
     Dosage: 1 CAPSULE 2X DAILY FOR 7DAYS PO
     Route: 048
     Dates: start: 20100823, end: 20100830

REACTIONS (10)
  - ASTHMA [None]
  - BLOOD PRESSURE INCREASED [None]
  - BURNING SENSATION [None]
  - CONDITION AGGRAVATED [None]
  - DRUG HYPERSENSITIVITY [None]
  - FREQUENT BOWEL MOVEMENTS [None]
  - MECHANICAL URTICARIA [None]
  - NO THERAPEUTIC RESPONSE [None]
  - PRODUCT SUBSTITUTION ISSUE [None]
  - URINARY TRACT INFECTION [None]
